FAERS Safety Report 7045658-6 (Version None)
Quarter: 2010Q4

REPORT INFORMATION
  Report Type: 
  Country: None (occurrence: None)
  Receive Date: 20101013
  Receipt Date: 20101013
  Transmission Date: 20110411
  Serious: No
  Sender: FDA-Public Use
  Company Number: None

PATIENT

DRUGS (1)
  1. OXYCONTIN [Suspect]
     Indication: BACK PAIN
     Dosage: 1 X2 PER DAY PO
     Route: 048

REACTIONS (3)
  - INADEQUATE ANALGESIA [None]
  - MEDICATION RESIDUE [None]
  - PRODUCT FORMULATION ISSUE [None]
